FAERS Safety Report 4915174-3 (Version None)
Quarter: 2006Q1

REPORT INFORMATION
  Report Type: 
  Country: None (occurrence: None)
  Receive Date: 20060216
  Receipt Date: 20060216
  Transmission Date: 20060701
  Serious: Yes (Hospitalization)
  Sender: FDA-Public Use
  Company Number: None

PATIENT
  Sex: Female

DRUGS (6)
  1. TAXOTERE [Suspect]
     Indication: NEOPLASM MALIGNANT
     Dates: start: 20051013
  2. PROTONIX [Concomitant]
  3. CARDIZEM [Concomitant]
  4. PLAVIX [Concomitant]
  5. ADVAIR DISKUS 100/50 [Concomitant]
  6. ALBUTEROL/ATROVENT [Concomitant]

REACTIONS (4)
  - DYSPNOEA [None]
  - ERYTHEMA [None]
  - PRURITUS [None]
  - URTICARIA [None]
